FAERS Safety Report 8520377-5 (Version None)
Quarter: 2012Q3

REPORT INFORMATION
  Report Type: 
  Country: None (occurrence: None)
  Receive Date: 20120712
  Receipt Date: 20120712
  Transmission Date: 20120928
  Serious: Yes (Disabling, Other)
  Sender: FDA-Public Use
  Company Number: None

PATIENT
  Sex: Female
  Weight: 83.9154 kg

DRUGS (1)
  1. LUPRON [Suspect]
     Dates: start: 20030101, end: 20050101

REACTIONS (3)
  - JOINT EFFUSION [None]
  - ARTHRITIS [None]
  - PAIN [None]
